FAERS Safety Report 13779174 (Version 5)
Quarter: 2018Q1

REPORT INFORMATION
  Report Type: Report from Study
  Country: US (occurrence: US)
  Receive Date: 20170721
  Receipt Date: 20180328
  Transmission Date: 20180508
  Serious: Yes (Hospitalization, Other)
  Sender: FDA-Public Use
  Company Number: US-BIOGEN-182084

PATIENT
  Age: 43 Year
  Sex: Female
  Weight: 56.75 kg

DRUGS (9)
  1. AVONEX [Suspect]
     Active Substance: INTERFERON BETA-1A
     Indication: MULTIPLE SCLEROSIS
     Route: 030
  2. AVONEX [Suspect]
     Active Substance: INTERFERON BETA-1A
     Route: 030
     Dates: start: 19951001
  3. CIPROFLOXACIN HCL [Concomitant]
     Active Substance: CIPROFLOXACIN HYDROCHLORIDE
     Indication: PRODUCT USED FOR UNKNOWN INDICATION
     Route: 065
  4. AVONEX [Suspect]
     Active Substance: INTERFERON BETA-1A
     Route: 030
     Dates: end: 2003
  5. AVONEX [Suspect]
     Active Substance: INTERFERON BETA-1A
     Route: 030
     Dates: start: 2003
  6. FLEXERIL [Concomitant]
     Active Substance: CYCLOBENZAPRINE HYDROCHLORIDE
     Indication: PRODUCT USED FOR UNKNOWN INDICATION
     Route: 065
  7. AVONEX [Suspect]
     Active Substance: INTERFERON BETA-1A
     Route: 030
     Dates: start: 20001001
  8. AVONEX [Suspect]
     Active Substance: INTERFERON BETA-1A
     Route: 065
     Dates: start: 20070115, end: 20160426
  9. TRAZODONE HYDROCHLORIDE. [Concomitant]
     Active Substance: TRAZODONE HYDROCHLORIDE
     Indication: PRODUCT USED FOR UNKNOWN INDICATION
     Route: 065

REACTIONS (17)
  - Rib fracture [Recovered/Resolved]
  - Laceration [Recovered/Resolved]
  - Central nervous system inflammation [Unknown]
  - Systemic lupus erythematosus [Not Recovered/Not Resolved]
  - Drug hypersensitivity [Recovered/Resolved]
  - Fall [Recovered/Resolved]
  - Fractured coccyx [Recovered/Resolved]
  - Thyroid disorder [Not Recovered/Not Resolved]
  - Road traffic accident [Recovered/Resolved]
  - Weight increased [Recovered/Resolved]
  - Deep vein thrombosis [Recovered/Resolved]
  - Coagulation time prolonged [Not Recovered/Not Resolved]
  - Weight decreased [Not Recovered/Not Resolved]
  - Autism spectrum disorder [Recovered/Resolved]
  - Clavicle fracture [Recovered/Resolved]
  - Fatigue [Not Recovered/Not Resolved]
  - Arthralgia [Not Recovered/Not Resolved]

NARRATIVE: CASE EVENT DATE: 1996
